FAERS Safety Report 7385052-1 (Version None)
Quarter: 2011Q1

REPORT INFORMATION
  Report Type: 
  Country: None (occurrence: None)
  Receive Date: 20110330
  Receipt Date: 20110303
  Transmission Date: 20110831
  Serious: No
  Sender: FDA-Public Use
  Company Number: US-B.I. PHARMACEUTICALS,INC./RIDGEFIELD-2011-BP-06319BP

PATIENT
  Sex: Male

DRUGS (9)
  1. TIKOSYN [Concomitant]
     Indication: ATRIAL FIBRILLATION
     Dosage: 125 MG
  2. SYNTHROID [Concomitant]
     Indication: HYPOTHYROIDISM
     Dosage: 200 MG
  3. ZOCOR [Concomitant]
     Indication: BLOOD CHOLESTEROL INCREASED
     Dosage: 40 MG
  4. PRADAXA [Suspect]
     Indication: ATRIAL FIBRILLATION
     Dosage: 300 MG
     Route: 048
     Dates: start: 20110227
  5. TOPROLOL [Concomitant]
     Indication: HYPERTENSION
     Dosage: 20 MG
  6. DIOVAN [Concomitant]
     Indication: HYPERTENSION
     Dosage: 40 MG
  7. AVODART [Concomitant]
     Indication: PROSTATOMEGALY
     Dosage: 5 MG
  8. FLOMAX [Concomitant]
     Indication: PROSTATOMEGALY
     Dosage: 4 MG
     Dates: start: 20101101
  9. LOVAZA [Concomitant]
     Indication: PROPHYLAXIS
     Dosage: 4 MG

REACTIONS (10)
  - ABDOMINAL DISTENSION [None]
  - VISUAL IMPAIRMENT [None]
  - ASTHENIA [None]
  - CHEST PAIN [None]
  - HEADACHE [None]
  - HEART RATE INCREASED [None]
  - ABDOMINAL PAIN UPPER [None]
  - HEART RATE IRREGULAR [None]
  - AGITATION [None]
  - DIARRHOEA [None]
